FAERS Safety Report 12166094 (Version 2)
Quarter: 2016Q1

REPORT INFORMATION
  Report Type: Report from Study
  Country: CA (occurrence: CA)
  Receive Date: 20160309
  Receipt Date: 20160311
  Transmission Date: 20160526
  Serious: Yes (Hospitalization)
  Sender: FDA-Public Use
  Company Number: CA-ABBVIE-16K-028-1546008-00

PATIENT
  Age: 76 Year
  Sex: Male
  Weight: 104 kg

DRUGS (3)
  1. HUMIRA [Suspect]
     Active Substance: ADALIMUMAB
     Indication: CROHN^S DISEASE
     Route: 058
     Dates: start: 20130304, end: 20151227
  2. HUMIRA [Suspect]
     Active Substance: ADALIMUMAB
     Route: 058
  3. VACCINATIONS FLU/ PNEUMOCOCCAL [Concomitant]
     Indication: PRODUCT USED FOR UNKNOWN INDICATION

REACTIONS (6)
  - Cellulitis [Unknown]
  - Coronary artery disease [Unknown]
  - Chronic obstructive pulmonary disease [Recovering/Resolving]
  - Device defective [Unknown]
  - Pneumonia [Recovering/Resolving]
  - Multimorbidity [Unknown]

NARRATIVE: CASE EVENT DATE: 201502
